FAERS Safety Report 5237437-7 (Version None)
Quarter: 2007Q1

REPORT INFORMATION
  Report Type: 
  Country: None (occurrence: None)
  Receive Date: 20070213
  Receipt Date: 20070201
  Transmission Date: 20070707
  Serious: Yes (Other)
  Sender: FDA-Public Use
  Company Number: US-PFIZER INC-2007009895

PATIENT
  Sex: Male

DRUGS (3)
  1. LYRICA [Suspect]
     Indication: NEUROPATHY
  2. ARICEPT [Concomitant]
  3. COUMADIN [Concomitant]

REACTIONS (1)
  - HELICOBACTER GASTRITIS [None]
